FAERS Safety Report 14973826 (Version 1)
Quarter: 2018Q2

REPORT INFORMATION
  Report Type: Spontaneous
  Country: FR (occurrence: FR)
  Receive Date: 20180605
  Receipt Date: 20180605
  Transmission Date: 20180711
  Serious: Yes (Hospitalization, Other)
  Sender: FDA-Public Use
  Company Number: FR-MYLANLABS-2018M1037033

PATIENT
  Age: 63 Year
  Sex: Female

DRUGS (4)
  1. ZOPICLONE [Concomitant]
     Active Substance: ZOPICLONE
     Indication: SLEEP DISORDER
     Dosage: 7.5 MG, QD, AT BEDTIME
     Route: 065
  2. ESCITALOPRAM [Concomitant]
     Active Substance: ESCITALOPRAM OXALATE
     Indication: DEPRESSION
     Dosage: 10 MG, QD
     Route: 065
  3. BACLOFEN. [Suspect]
     Active Substance: BACLOFEN
     Indication: ALCOHOLISM
     Dosage: UP TO 270 MG DAILY (SLOW AND MODERATE INCREASE IN DOSAGE TO REACH A HIGH DOSE OF 90 MG 3 TIMES A ...
     Route: 065
  4. OXAZEPAM. [Concomitant]
     Active Substance: OXAZEPAM
     Indication: ANXIETY
     Dosage: 12.5 MG, DAILY
     Route: 065

REACTIONS (18)
  - Pain [Unknown]
  - Dyspepsia [Unknown]
  - Anxiety [Recovered/Resolved]
  - Loss of consciousness [Unknown]
  - Vomiting [Unknown]
  - Accommodation disorder [Unknown]
  - Drug dependence [Recovered/Resolved]
  - Toxicity to various agents [Unknown]
  - Somnolence [Unknown]
  - Disorientation [Unknown]
  - Hallucination, visual [Recovered/Resolved]
  - Speech disorder [Recovered/Resolved]
  - Headache [Unknown]
  - Drug withdrawal syndrome [Recovered/Resolved]
  - Dizziness [Unknown]
  - Insomnia [Unknown]
  - Discomfort [Unknown]
  - Confusional state [Recovered/Resolved]
